FAERS Safety Report 19714343 (Version 1)
Quarter: 2021Q3

REPORT INFORMATION
  Report Type: Spontaneous
  Country: US (occurrence: US)
  Receive Date: 20210818
  Receipt Date: 20210818
  Transmission Date: 20211014
  Serious: Yes (Other)
  Sender: FDA-Public Use
  Company Number: US-LUPIN PHARMACEUTICALS INC.-2021-15645

PATIENT
  Age: 74 Year
  Sex: Female

DRUGS (6)
  1. PENICILLIN [Suspect]
     Active Substance: PENICILLIN
     Dosage: 1000 IU/ML
     Route: 065
  2. PENICILLIN [Suspect]
     Active Substance: PENICILLIN
     Dosage: 10,000 IU/ML
     Route: 065
  3. PENICILLIN [Suspect]
     Active Substance: PENICILLIN
     Indication: SKIN TEST
     Dosage: UNK
     Route: 065
  4. CEPHALEXIN. [Suspect]
     Active Substance: CEPHALEXIN
     Indication: PRODUCT USED FOR UNKNOWN INDICATION
     Dosage: UNK
     Route: 065
  5. AMPICILLIN [Suspect]
     Active Substance: AMPICILLIN
     Indication: SKIN TEST
     Dosage: 25 MILLIGRAM PER MILLILITRE
     Route: 065
  6. FLUCLOXACILLIN [Suspect]
     Active Substance: FLUCLOXACILLIN
     Indication: SKIN TEST
     Dosage: 2 MILLIGRAM PER MILLILITRE
     Route: 065

REACTIONS (2)
  - Rash maculo-papular [Unknown]
  - Type IV hypersensitivity reaction [Unknown]
